FAERS Safety Report 8470429-3 (Version None)
Quarter: 2012Q2

REPORT INFORMATION
  Report Type: 
  Country: None (occurrence: None)
  Receive Date: 20120620
  Receipt Date: 20120613
  Transmission Date: 20120825
  Serious: Yes (Other)
  Sender: FDA-Public Use
  Company Number: DKLU1082086

PATIENT
  Age: 55 Year
  Sex: Female

DRUGS (3)
  1. TEGRETOL [Concomitant]
  2. GABITROL (TIAGABINE HYDROCHLORIDE) [Concomitant]
  3. SABRIL [Suspect]
     Indication: COMPLEX PARTIAL SEIZURES
     Dosage: 1000 MG MILLIGRAM(S), 3 IN 1 D, ORAL
     Route: 048
     Dates: start: 20101221

REACTIONS (1)
  - CATARACT OPERATION [None]
